FAERS Safety Report 23966241 (Version 1)
Quarter: 2024Q2

REPORT INFORMATION
  Report Type: Report from Study
  Country: AR (occurrence: AR)
  Receive Date: 20240612
  Receipt Date: 20240612
  Transmission Date: 20240716
  Serious: Yes (Hospitalization)
  Sender: FDA-Public Use
  Company Number: AR-002147023-NVSC2024AR122388

PATIENT
  Sex: Male

DRUGS (1)
  1. COSENTYX [Suspect]
     Active Substance: SECUKINUMAB
     Indication: Hidradenitis
     Dosage: 600 MG, Q2W
     Route: 058
     Dates: start: 20240409

REACTIONS (5)
  - Hidradenitis [Not Recovered/Not Resolved]
  - Pain [Unknown]
  - Swelling [Unknown]
  - Off label use [Unknown]
  - Therapeutic product effect decreased [Unknown]
